FAERS Safety Report 21182648 (Version 1)
Quarter: 2022Q3

REPORT INFORMATION
  Report Type: Spontaneous
  Country: US (occurrence: US)
  Receive Date: 20220808
  Receipt Date: 20220808
  Transmission Date: 20221027
  Serious: No
  Sender: FDA-Public Use
  Company Number: US-Ipsen Biopharmaceuticals, Inc.-2022-21928

PATIENT
  Age: 41 Year
  Sex: Female

DRUGS (8)
  1. DYSPORT [Suspect]
     Active Substance: ABOBOTULINUMTOXINA
     Indication: Skin wrinkling
     Dosage: DOSE NOT REPORTED
     Route: 065
     Dates: start: 20220519, end: 20220519
  2. DYSPORT [Suspect]
     Active Substance: ABOBOTULINUMTOXINA
     Indication: Skin wrinkling
  3. DYSPORT [Suspect]
     Active Substance: ABOBOTULINUMTOXINA
     Indication: Skin wrinkling
  4. DYSPORT [Suspect]
     Active Substance: ABOBOTULINUMTOXINA
     Indication: Off label use
  5. POLYLACTIDE, L- [Suspect]
     Active Substance: POLYLACTIDE, L-
     Indication: Skin wrinkling
     Dosage: DOSE NOT REPORTED
     Dates: start: 20220519, end: 20220519
  6. ALDACTONE [Concomitant]
     Active Substance: SPIRONOLACTONE
  7. YAZ [Concomitant]
     Active Substance: DROSPIRENONE\ETHINYL ESTRADIOL
     Indication: Contraception
  8. HYDROQUINONE [Concomitant]
     Active Substance: HYDROQUINONE

REACTIONS (8)
  - Trismus [Unknown]
  - Injection site bruising [Unknown]
  - Injection site swelling [Unknown]
  - Muscle spasms [Unknown]
  - Drug ineffective [Unknown]
  - Off label use [Unknown]
  - Off label use [Unknown]
  - Off label use [Unknown]

NARRATIVE: CASE EVENT DATE: 20220101
